FAERS Safety Report 19713153 (Version 2)
Quarter: 2022Q1

REPORT INFORMATION
  Report Type: Report from Study
  Country: CA (occurrence: CA)
  Receive Date: 20210816
  Receipt Date: 20220317
  Transmission Date: 20220423
  Serious: Yes (Other)
  Sender: FDA-Public Use
  Company Number: CA-ABBVIE-21K-028-4037175-00

PATIENT
  Sex: Female

DRUGS (1)
  1. RINVOQ [Suspect]
     Active Substance: UPADACITINIB
     Indication: Rheumatoid arthritis
     Route: 048
     Dates: start: 20210626

REACTIONS (3)
  - Melanocytic naevus [Unknown]
  - Malignant melanoma [Recovered/Resolved]
  - Malignant melanoma [Unknown]

NARRATIVE: CASE EVENT DATE: 20210101
